FAERS Safety Report 25192243 (Version 2)
Quarter: 2025Q2

REPORT INFORMATION
  Report Type: Spontaneous
  Country: TW (occurrence: TW)
  Receive Date: 20250414
  Receipt Date: 20250429
  Transmission Date: 20250717
  Serious: Yes (Other)
  Sender: SANDOZ
  Company Number: TW-SANDOZ-SDZ2025TW022614

PATIENT
  Age: 30 Year
  Sex: Female
  Weight: 52.5 kg

DRUGS (2)
  1. AMIKACIN [Suspect]
     Active Substance: AMIKACIN
     Indication: Cellulitis
     Dosage: 500 MG, QD
     Route: 030
     Dates: start: 20250303, end: 20250305
  2. AMOXICILLIN\CLAVULANATE POTASSIUM [Suspect]
     Active Substance: AMOXICILLIN\CLAVULANATE POTASSIUM
     Indication: Cellulitis
     Dosage: 1000 MG, BID FOR SEVEN DAYS
     Route: 048
     Dates: start: 20250304, end: 20250307

REACTIONS (2)
  - Mouth ulceration [Unknown]
  - Rash [Unknown]

NARRATIVE: CASE EVENT DATE: 20250307
